FAERS Safety Report 8881073 (Version 2)
Quarter: 2012Q4

REPORT INFORMATION
  Report Type: 
  Country: DE (occurrence: DE)
  Receive Date: 20121101
  Receipt Date: 20121116
  Transmission Date: 20130627
  Serious: Yes (Hospitalization, Other)
  Sender: FDA-Public Use
  Company Number: DE-AMGEN-DEUSP2012068651

PATIENT
  Age: 80 Year
  Sex: Male
  Weight: 64 kg

DRUGS (5)
  1. XGEVA [Suspect]
     Indication: PROPHYLAXIS
     Dosage: 120 mg, qmo
     Route: 058
     Dates: start: 20120119, end: 20120828
  2. FIRMAGON                           /01764801/ [Suspect]
     Indication: PROSTATE CANCER
     Dosage: 80 mg, q3mo
     Route: 058
     Dates: start: 20111130, end: 20120828
  3. BICALUTIN [Concomitant]
     Indication: PROSTATE CANCER
     Dosage: 50 mg, qd
     Route: 048
     Dates: start: 20111130
  4. CALCIDOSE                          /00944201/ [Concomitant]
     Indication: PROPHYLAXIS
     Dosage: 400/600 mg, qd
     Dates: start: 20120119
  5. ASS [Concomitant]
     Indication: PROPHYLAXIS
     Dosage: 100 mg, qd
     Route: 048

REACTIONS (11)
  - Cerebral ischaemia [Unknown]
  - Aortic aneurysm [Unknown]
  - Microangiopathy [Unknown]
  - Reversible ischaemic neurological deficit [Recovered/Resolved]
  - Cerebral arteriosclerosis [Recovered/Resolved]
  - Muscular weakness [Recovered/Resolved]
  - Dysarthria [Recovered/Resolved]
  - VIIth nerve paralysis [Recovered/Resolved]
  - Gait disturbance [Recovered/Resolved]
  - Vertigo [Recovered/Resolved]
  - Ataxia [Recovered/Resolved]
